FAERS Safety Report 6659656-5 (Version None)
Quarter: 2010Q1

REPORT INFORMATION
  Report Type: 
  Country: None (occurrence: None)
  Receive Date: 20100330
  Receipt Date: 20100315
  Transmission Date: 20100710
  Serious: Yes (Other)
  Sender: FDA-Public Use
  Company Number: DE-GENENTECH-299734

PATIENT
  Age: 74 Year
  Sex: Female

DRUGS (1)
  1. LUCENTIS [Suspect]
     Indication: DRUG USE FOR UNKNOWN INDICATION
     Dosage: UNK
     Route: 031
     Dates: end: 20090101

REACTIONS (3)
  - DETACHMENT OF RETINAL PIGMENT EPITHELIUM [None]
  - MACULAR DEGENERATION [None]
  - VISUAL ACUITY REDUCED [None]
